FAERS Safety Report 9198609 (Version 4)
Quarter: 2013Q2

REPORT INFORMATION
  Report Type: Spontaneous
  Country: US (occurrence: US)
  Receive Date: 20130329
  Receipt Date: 20130603
  Transmission Date: 20140414
  Serious: Yes (Other)
  Sender: FDA-Public Use
  Company Number: US-JNJFOC-20130314777

PATIENT
  Age: 40 Year
  Sex: Female

DRUGS (2)
  1. REMICADE [Suspect]
     Indication: CROHN^S DISEASE
     Dosage: 7.5 [SIC]
     Route: 042
     Dates: start: 201006
  2. REMICADE [Suspect]
     Indication: COLITIS ULCERATIVE
     Dosage: 7.5 [SIC]
     Route: 042
     Dates: start: 201006

REACTIONS (2)
  - Drug eruption [Recovering/Resolving]
  - Melanocytic naevus [Recovering/Resolving]
